FAERS Safety Report 5662368-8 (Version None)
Quarter: 2008Q1

REPORT INFORMATION
  Report Type: 
  Country: None (occurrence: None)
  Receive Date: 20080310
  Receipt Date: 20080128
  Transmission Date: 20080703
  Serious: No
  Sender: FDA-Public Use
  Company Number: ADE# 08-013

PATIENT
  Age: 50 Year
  Sex: Male

DRUGS (3)
  1. OXCARBAZEPINE [Suspect]
     Indication: CONVULSION
     Dosage: 2 1/2 TAB 2X DAILY
     Dates: start: 20080119, end: 20080101
  2. TOPAMAX [Concomitant]
  3. CLONAZEPAM [Concomitant]

REACTIONS (1)
  - DRUG EFFECT DECREASED [None]
